FAERS Safety Report 6000584-6 (Version None)
Quarter: 2008Q4

REPORT INFORMATION
  Report Type: 
  Country: None (occurrence: None)
  Receive Date: 20081215
  Receipt Date: 20081202
  Transmission Date: 20090506
  Serious: Yes (Death, Other)
  Sender: FDA-Public Use
  Company Number: IN-ROCHE-600553

PATIENT
  Sex: Male
  Weight: 50 kg

DRUGS (6)
  1. METHOXY POLYETHYLENE GLYCOL-EPOETIN BETA [Suspect]
     Dosage: DOSAGE FORM REPORTED AS PFS
     Route: 042
     Dates: start: 20081125
  2. AMLODIPINE [Concomitant]
     Route: 065
     Dates: start: 20071204
  3. FRUSENE [Concomitant]
     Dates: start: 20080213
  4. PHOSPHAT [Concomitant]
     Dates: start: 20080816
  5. MOSAPRIDE [Concomitant]
     Dates: start: 20080816
  6. ATENET [Concomitant]
     Dates: start: 20071004

REACTIONS (2)
  - CARDIAC ARREST [None]
  - DEATH [None]
